FAERS Safety Report 6931689-0 (Version None)
Quarter: 2010Q3

REPORT INFORMATION
  Report Type: 
  Country: None (occurrence: None)
  Receive Date: 20100819
  Receipt Date: 20100807
  Transmission Date: 20110219
  Serious: No
  Sender: FDA-Public Use
  Company Number: US-PFIZER INC-2010099287

PATIENT
  Sex: Female
  Weight: 54 kg

DRUGS (1)
  1. LYRICA [Suspect]
     Dosage: 75 MG, 2X/DAY
     Route: 048
     Dates: start: 20100805, end: 20100807

REACTIONS (4)
  - DIZZINESS [None]
  - DYSSTASIA [None]
  - HYPOAESTHESIA [None]
  - SOMNOLENCE [None]
